FAERS Safety Report 5451821-8 (Version None)
Quarter: 2007Q3

REPORT INFORMATION
  Report Type: 
  Country: None (occurrence: None)
  Receive Date: 20070806
  Receipt Date: 20070212
  Transmission Date: 20080115
  Serious: Yes (Other)
  Sender: FDA-Public Use
  Company Number: 34378

PATIENT
  Age: 32 Year
  Sex: Female
  Weight: 75.7507 kg

DRUGS (6)
  1. MIDAZOLAM HCL [Suspect]
     Indication: SEDATION
     Dosage: 2MG 3-4MIN/IV (TOTAL 10MG)
     Dates: start: 20070125
  2. MIDAZOLAM HCL [Suspect]
     Indication: SEDATION
  3. PENTASA [Concomitant]
  4. PEROCET [Concomitant]
  5. FENTANYL [Concomitant]
  6. VALIUM [Concomitant]

REACTIONS (1)
  - DRUG INEFFECTIVE [None]
